FAERS Safety Report 6108844-5 (Version None)
Quarter: 2009Q1

REPORT INFORMATION
  Report Type: 
  Country: None (occurrence: None)
  Receive Date: 20090310
  Receipt Date: 20090302
  Transmission Date: 20090719
  Serious: Yes (Hospitalization)
  Sender: FDA-Public Use
  Company Number: US-BIOGENIDEC-2009BI001308

PATIENT
  Age: 65 Year
  Sex: Female

DRUGS (2)
  1. AVONEX [Suspect]
     Indication: MULTIPLE SCLEROSIS
     Route: 030
     Dates: start: 19960801
  2. AVONEX [Suspect]
     Route: 030

REACTIONS (9)
  - BALANCE DISORDER [None]
  - DEHYDRATION [None]
  - FALL [None]
  - FATIGUE [None]
  - MUSCULAR WEAKNESS [None]
  - NERVE INJURY [None]
  - OBESITY [None]
  - ROTATOR CUFF SYNDROME [None]
  - SINUS DISORDER [None]
